FAERS Safety Report 4331609-1 (Version None)
Quarter: 2004Q2

REPORT INFORMATION
  Report Type: 
  Country: None (occurrence: None)
  Receive Date: 20040405
  Receipt Date: 20030403
  Transmission Date: 20050107
  Serious: Yes (Hospitalization)
  Sender: FDA-Public Use
  Company Number: JP-MERCK-0304USA00893

PATIENT
  Age: 80 Year
  Sex: Female

DRUGS (5)
  1. CARBOCYSTEINE [Concomitant]
     Route: 065
  2. GLIMEPIRIDE [Concomitant]
     Route: 065
  3. COZAAR [Concomitant]
     Indication: HYPERTENSION
     Route: 048
  4. SINGULAIR [Suspect]
     Indication: ASTHMA
     Route: 048
     Dates: start: 20030301, end: 20030329
  5. THEOPHYLLINE [Concomitant]
     Route: 065

REACTIONS (1)
  - MALAISE [None]
